FAERS Safety Report 12618235 (Version 1)
Quarter: 2016Q3

REPORT INFORMATION
  Report Type: Report from Study
  Country: US (occurrence: US)
  Receive Date: 20160803
  Receipt Date: 20160803
  Transmission Date: 20161109
  Serious: Yes (Hospitalization, Other)
  Sender: FDA-Public Use
  Company Number: US-BAYER-2016-119253

PATIENT
  Age: 64 Year
  Sex: Female
  Weight: 58 kg

DRUGS (2)
  1. STIVARGA [Suspect]
     Active Substance: REGORAFENIB
     Indication: COLON CANCER
     Dosage: 160 MG, QD (DAILY FOR 3 WEEKS ON 1 WEEK OFF)
     Route: 048
     Dates: start: 20160613, end: 20160616
  2. STIVARGA [Suspect]
     Active Substance: REGORAFENIB
     Indication: COLON CANCER
     Dosage: DOSE DECREASED
     Route: 048
     Dates: start: 20160707, end: 20160713

REACTIONS (22)
  - Heart rate increased [Recovered/Resolved]
  - Hypotension [Unknown]
  - Adverse drug reaction [Unknown]
  - Decreased appetite [Unknown]
  - Palmar-plantar erythrodysaesthesia syndrome [Recovering/Resolving]
  - Rash [Recovering/Resolving]
  - Intentional product misuse [Unknown]
  - Blood pressure diastolic increased [Unknown]
  - Nausea [Recovering/Resolving]
  - Stomatitis [Recovering/Resolving]
  - Dyspnoea [Recovering/Resolving]
  - Pain in extremity [Recovering/Resolving]
  - Oropharyngeal pain [Recovered/Resolved]
  - Dehydration [Unknown]
  - Mucosal inflammation [Unknown]
  - Activities of daily living impaired [Unknown]
  - Failure to thrive [Unknown]
  - Skin exfoliation [Recovering/Resolving]
  - Fatigue [Recovered/Resolved]
  - Weight decreased [Unknown]
  - Hospitalisation [None]
  - Vomiting [Recovering/Resolving]

NARRATIVE: CASE EVENT DATE: 201606
